FAERS Safety Report 5146098-7 (Version None)
Quarter: 2006Q4

REPORT INFORMATION
  Report Type: 
  Country: None (occurrence: None)
  Receive Date: 20061108
  Receipt Date: 20060830
  Transmission Date: 20070319
  Serious: Yes (Life-Threatening)
  Sender: FDA-Public Use
  Company Number: JP-AVENTIS-200612706JP

PATIENT
  Age: 62 Year
  Sex: Male

DRUGS (11)
  1. LASIX [Suspect]
     Indication: CARDIAC FAILURE CONGESTIVE
     Route: 048
     Dates: start: 20060720, end: 20060815
  2. LASIX [Suspect]
     Route: 048
     Dates: start: 20060817
  3. ANCARON [Suspect]
     Indication: ATRIAL FIBRILLATION
     Route: 048
     Dates: start: 20060817, end: 20060831
  4. GASTER D [Concomitant]
     Indication: STRESS ULCER
     Route: 048
     Dates: start: 20060817, end: 20060919
  5. MICARDIS [Concomitant]
     Indication: HYPERTENSION
     Route: 048
     Dates: start: 20060720, end: 20060815
  6. MICARDIS [Concomitant]
     Route: 048
     Dates: start: 20060817, end: 20060912
  7. WARFARIN SODIUM [Concomitant]
     Route: 048
     Dates: start: 20060817
  8. LANIRAPID [Concomitant]
     Indication: TACHYCARDIA
     Route: 048
     Dates: start: 20060817, end: 20060822
  9. ARTIST [Concomitant]
     Indication: HYPERTENSION
     Route: 048
     Dates: start: 20060913
  10. GASMOTIN [Concomitant]
     Indication: GASTRITIS
     Dosage: FREQUENCY: AFTER MEALS
     Route: 048
     Dates: start: 20060831
  11. NORVASC                            /00972401/ [Concomitant]
     Indication: HYPERTENSION
     Route: 048
     Dates: start: 20060720, end: 20060815

REACTIONS (17)
  - ASPARTATE AMINOTRANSFERASE INCREASED [None]
  - BLOOD ALBUMIN DECREASED [None]
  - BLOOD CREATINE PHOSPHOKINASE INCREASED [None]
  - BLOOD LACTATE DEHYDROGENASE INCREASED [None]
  - BLOOD POTASSIUM DECREASED [None]
  - BLOOD SODIUM DECREASED [None]
  - CARDIAC TAMPONADE [None]
  - DRUG INEFFECTIVE [None]
  - HAEMATOCRIT DECREASED [None]
  - HAEMOGLOBIN DECREASED [None]
  - PERICARDIAL EFFUSION [None]
  - PLATELET COUNT DECREASED [None]
  - PROTEIN TOTAL DECREASED [None]
  - RED BLOOD CELL COUNT DECREASED [None]
  - RENAL FAILURE [None]
  - WEIGHT DECREASED [None]
  - WHITE BLOOD CELL COUNT INCREASED [None]
